FAERS Safety Report 7794317-0 (Version None)
Quarter: 2011Q4

REPORT INFORMATION
  Report Type: 
  Country: None (occurrence: None)
  Receive Date: 20111004
  Receipt Date: 20110927
  Transmission Date: 20120403
  Serious: Yes (Other)
  Sender: FDA-Public Use
  Company Number: FR-PFIZER INC-2011229285

PATIENT
  Age: 56 Year
  Sex: Female

DRUGS (8)
  1. BYETTA [Concomitant]
     Indication: TYPE 2 DIABETES MELLITUS
     Dosage: UNK
  2. DOSTINEX [Suspect]
     Dosage: 0.5 DF, WEEKLY
     Route: 048
     Dates: start: 20000401, end: 20080101
  3. FENFLURAMINE HYDROCHLORIDE [Suspect]
  4. MEDIATOR [Suspect]
     Dosage: 1 DF, 3X/DAY
     Route: 048
     Dates: start: 20000101, end: 20070101
  5. ESCITALOPRAM OXALATE [Concomitant]
  6. RAMIPRIL [Concomitant]
     Indication: HYPERTENSION
     Dosage: UNK
  7. ISOMERIDE [Suspect]
     Route: 048
  8. CRESTOR [Concomitant]
     Indication: DYSLIPIDAEMIA
     Dosage: UNK

REACTIONS (3)
  - MITRAL VALVE INCOMPETENCE [None]
  - CHEST PAIN [None]
  - AORTIC VALVE INCOMPETENCE [None]
